FAERS Safety Report 5288825-4 (Version None)
Quarter: 2007Q2

REPORT INFORMATION
  Report Type: 
  Country: None (occurrence: None)
  Receive Date: 20070405
  Receipt Date: 20070328
  Transmission Date: 20071010
  Serious: Yes (Hospitalization)
  Sender: FDA-Public Use
  Company Number: SK-ABBOTT-07P-260-0363536-00

PATIENT
  Sex: Female
  Weight: 85 kg

DRUGS (6)
  1. HUMIRA [Suspect]
     Indication: RHEUMATOID ARTHRITIS
     Route: 058
     Dates: start: 20050429, end: 20070301
  2. METHOTREXATE [Concomitant]
     Indication: RHEUMATOID ARTHRITIS
     Route: 048
     Dates: start: 20050429, end: 20060901
  3. METHOTREXATE [Concomitant]
     Route: 048
     Dates: start: 20060901
  4. ACIDUM FOLICUM [Concomitant]
     Indication: DRUG USE FOR UNKNOWN INDICATION
     Route: 048
  5. PREDNISONE [Concomitant]
     Indication: RHEUMATOID ARTHRITIS
     Route: 048
  6. NAPROXEN [Concomitant]
     Indication: RHEUMATOID ARTHRITIS
     Route: 048

REACTIONS (5)
  - ASCITES [None]
  - OVARIAN MASS [None]
  - OVARIAN NEOPLASM [None]
  - PERITONEAL CARCINOMA [None]
  - TRANSAMINASES INCREASED [None]
